FAERS Safety Report 25744207 (Version 1)
Quarter: 2025Q3

REPORT INFORMATION
  Report Type: Spontaneous
  Country: US (occurrence: US)
  Receive Date: 20250901
  Receipt Date: 20250901
  Transmission Date: 20251021
  Serious: Yes (Other)
  Sender: BRISTOL-MYERS SQUIBB COMPANY
  Company Number: US-BRISTOL-MYERS SQUIBB COMPANY-2025-118829

PATIENT
  Age: 60 Year
  Sex: Male

DRUGS (5)
  1. IDHIFA [Suspect]
     Active Substance: ENASIDENIB MESYLATE
     Indication: Chronic myeloid leukaemia
     Dosage: 1 TIME A DAY
     Route: 048
     Dates: start: 202412
  2. IDHIFA [Suspect]
     Active Substance: ENASIDENIB MESYLATE
     Indication: Chronic leukaemia
  3. IDHIFA [Suspect]
     Active Substance: ENASIDENIB MESYLATE
     Indication: Leukaemia
  4. JAKAFI [Concomitant]
     Active Substance: RUXOLITINIB
     Indication: Product used for unknown indication
     Dosage: TAKE 2 TABLETS BY MOUTH IN THE MORNING AND 1 TABLET IN THE EVENING
     Route: 048
  5. OHTUVAYRE [Concomitant]
     Active Substance: ENSIFENTRINE
     Indication: Chronic obstructive pulmonary disease
     Route: 055

REACTIONS (2)
  - Recurrent cancer [Not Recovered/Not Resolved]
  - Off label use [Unknown]
